FAERS Safety Report 8179081-8 (Version None)
Quarter: 2012Q1

REPORT INFORMATION
  Report Type: 
  Country: None (occurrence: None)
  Receive Date: 20120302
  Receipt Date: 20120220
  Transmission Date: 20120608
  Serious: Yes (Hospitalization, Other)
  Sender: FDA-Public Use
  Company Number: GB-RANBAXY-2012R1-51781

PATIENT
  Age: 20 Year
  Sex: Female

DRUGS (6)
  1. AMOXICILLIN [Suspect]
     Indication: DYSPNOEA
  2. ALBUTEROL [Suspect]
     Indication: ASTHMA
     Dosage: UNK
     Route: 065
  3. SYMBICORT [Suspect]
     Indication: ASTHMA
     Dosage: UNK
     Route: 065
  4. AMOXICILLIN [Suspect]
     Indication: COUGH
     Dosage: 500 MG, TID
     Route: 065
     Dates: start: 20111226, end: 20111231
  5. PREDNISOLONE [Suspect]
     Indication: COUGH
     Dosage: 5 MG, 6/ 1 DAYS
     Route: 065
     Dates: start: 20111226, end: 20111226
  6. PREDNISOLONE [Suspect]
     Indication: DYSPNOEA

REACTIONS (4)
  - EXPIRED DRUG ADMINISTERED [None]
  - PNEUMONIA [None]
  - MATERNAL EXPOSURE DURING PREGNANCY [None]
  - MEDICATION ERROR [None]
